FAERS Safety Report 17799611 (Version 1)
Quarter: 2020Q2

REPORT INFORMATION
  Report Type: Report from Study
  Country: CO (occurrence: CO)
  Receive Date: 20200518
  Receipt Date: 20200518
  Transmission Date: 20200714
  Serious: Yes (Hospitalization)
  Sender: FDA-Public Use
  Company Number: CO-INCYTE CORPORATION-2018IN013546

PATIENT

DRUGS (1)
  1. JAKAVI [Suspect]
     Active Substance: RUXOLITINIB
     Indication: PRODUCT USED FOR UNKNOWN INDICATION
     Dosage: 20 DF, QD
     Route: 048

REACTIONS (3)
  - Headache [Unknown]
  - Eye pain [Unknown]
  - Urinary tract infection [Unknown]
